FAERS Safety Report 8184403-8 (Version None)
Quarter: 2012Q1

REPORT INFORMATION
  Report Type: 
  Country: None (occurrence: None)
  Receive Date: 20120305
  Receipt Date: 20120221
  Transmission Date: 20120608
  Serious: Yes (Hospitalization, Other)
  Sender: FDA-Public Use
  Company Number: TW-CELGENEUS-153-21880-12020671

PATIENT
  Sex: Female
  Weight: 56.2 kg

DRUGS (13)
  1. DEXAMETHASONE [Suspect]
     Dosage: 2.8571 MILLIGRAM
     Route: 065
     Dates: start: 20110422
  2. PROCTOSEDYL [Concomitant]
     Route: 065
  3. MEGEST [Concomitant]
     Dosage: 40MG/1ML 120ML/BTL 2ML
     Route: 048
  4. MUCOSOLVAN [Concomitant]
     Route: 048
     Dates: start: 20120217, end: 20120224
  5. REVLIMID [Suspect]
     Dosage: 10 MILLIGRAM
     Route: 048
     Dates: start: 20120203, end: 20120210
  6. ULTRACET [Concomitant]
     Dosage: 1 TABLET
     Route: 048
  7. TRANDATE [Concomitant]
     Indication: HYPERTENSION
     Dosage: 25MG/5ML/AMP 2MG
     Route: 041
     Dates: start: 20120217, end: 20120221
  8. DEXAMETHASONE [Suspect]
     Dosage: 2.8571 MILLIGRAM
     Route: 065
     Dates: start: 20120203, end: 20120210
  9. TRAMADOL HYDROCHLORIDE [Concomitant]
     Dosage: 100 MILLIGRAM
     Route: 048
  10. REVLIMID [Suspect]
     Dosage: 10 MILLIGRAM
     Route: 048
     Dates: start: 20110422
  11. ESTAZOLAM [Concomitant]
     Indication: INSOMNIA
     Dosage: 2 MILLIGRAM
     Route: 048
     Dates: start: 20120219, end: 20120224
  12. AUGMENTIN '125' [Concomitant]
     Dosage: 1 GRAM
     Route: 048
  13. MGO [Concomitant]
     Indication: CONSTIPATION
     Route: 048
     Dates: start: 20120217, end: 20120201

REACTIONS (1)
  - TONGUE NEOPLASM MALIGNANT STAGE UNSPECIFIED [None]
